FAERS Safety Report 4270112-4 (Version None)
Quarter: 2004Q1

REPORT INFORMATION
  Report Type: 
  Country: None (occurrence: None)
  Receive Date: 20040114
  Receipt Date: 20030326
  Transmission Date: 20041129
  Serious: No
  Sender: FDA-Public Use
  Company Number: US-GLAXOSMITHKLINE-A0402025A

PATIENT
  Age: 42 Year
  Sex: Male

DRUGS (2)
  1. WELLBUTRIN [Suspect]
     Indication: EX-SMOKER
     Dosage: 150MG TWICE PER DAY
     Route: 048
     Dates: start: 20030317, end: 20030326
  2. NALTREXONE HCL [Concomitant]

REACTIONS (6)
  - CONDITION AGGRAVATED [None]
  - IRRITABILITY [None]
  - OEDEMA PERIPHERAL [None]
  - PRURITUS [None]
  - PSYCHOMOTOR HYPERACTIVITY [None]
  - VISION BLURRED [None]
